FAERS Safety Report 7028995-0 (Version None)
Quarter: 2010Q4

REPORT INFORMATION
  Report Type: 
  Country: None (occurrence: None)
  Receive Date: 20101005
  Receipt Date: 20100928
  Transmission Date: 20110411
  Serious: Yes (Death, Hospitalization)
  Sender: FDA-Public Use
  Company Number: A0879915A

PATIENT
  Age: 64 Year
  Sex: Female
  Weight: 82.1 kg

DRUGS (12)
  1. LEUKERAN [Suspect]
     Dosage: 2MG UNKNOWN
     Route: 048
     Dates: start: 20091221, end: 20100129
  2. ALLOPURINOL [Concomitant]
     Dates: start: 20090223
  3. ALPRAZOLAM [Concomitant]
     Dates: start: 20091123
  4. ELAVIL [Concomitant]
     Dates: start: 20091111
  5. ACETAMINOPHEN AND HYDROCODONE BITARTRATE [Concomitant]
     Dates: start: 20100302
  6. MOUTHWASH [Concomitant]
     Dates: start: 20091207
  7. PROCHLORPERAZINE MALEATE [Concomitant]
     Dates: start: 20090311
  8. SODIUM CHLORIDE [Concomitant]
     Dates: start: 20100128
  9. TRAMADOL HCL [Concomitant]
     Dates: start: 20091111
  10. AMITRIPTYLINE [Concomitant]
     Dosage: 50MG PER DAY
     Route: 048
  11. CENTRUM SILVER [Concomitant]
     Dosage: 1TAB PER DAY
     Route: 048
  12. CIPRO [Concomitant]
     Dosage: 500MG TWICE PER DAY
     Route: 048

REACTIONS (17)
  - ABDOMINAL PAIN [None]
  - BEDRIDDEN [None]
  - COUGH [None]
  - DECREASED APPETITE [None]
  - DEHYDRATION [None]
  - DISEASE PROGRESSION [None]
  - GENERAL PHYSICAL HEALTH DETERIORATION [None]
  - HEADACHE [None]
  - HOSPICE CARE [None]
  - LYMPHOCYTE COUNT DECREASED [None]
  - LYMPHOMA [None]
  - NAUSEA [None]
  - ORAL CANDIDIASIS [None]
  - PRODUCTIVE COUGH [None]
  - RED BLOOD CELL COUNT DECREASED [None]
  - SPUTUM DISCOLOURED [None]
  - TREATMENT FAILURE [None]
